FAERS Safety Report 5734590-3 (Version None)
Quarter: 2008Q2

REPORT INFORMATION
  Report Type: 
  Country: None (occurrence: None)
  Receive Date: 20080512
  Receipt Date: 20080430
  Transmission Date: 20081010
  Serious: Yes (Death, Other)
  Sender: FDA-Public Use
  Company Number: SE-AMGEN-UK275580

PATIENT
  Sex: Female

DRUGS (1)
  1. MIMPARA [Suspect]
     Indication: HYPERPARATHYROIDISM SECONDARY
     Route: 065
     Dates: end: 20060501

REACTIONS (3)
  - ABDOMINAL PAIN [None]
  - DEATH [None]
  - PANCREATITIS [None]
